FAERS Safety Report 9995641 (Version 1)
Quarter: 2014Q1

REPORT INFORMATION
  Report Type: Spontaneous
  Country: US (occurrence: US)
  Receive Date: 20140311
  Receipt Date: 20140311
  Transmission Date: 20141002
  Serious: No
  Sender: FDA-Public Use
  Company Number: US-GALDERMA-US13001355

PATIENT
  Age: 53 Year
  Sex: Female

DRUGS (3)
  1. TRI-LUMA CREAM (FLUOCINOLONE ACETONIDE 0.01%, HYDROQUINONE 4%, TRETINO [Suspect]
     Indication: PIGMENTATION DISORDER
     Route: 061
     Dates: start: 20130426
  2. PRINOVIL [Concomitant]
     Indication: HYPERTENSION
     Route: 048
     Dates: start: 201201
  3. CHLORTHALIDONE [Concomitant]
     Indication: HYPERTENSION
     Route: 048
     Dates: start: 201201

REACTIONS (3)
  - Drug ineffective for unapproved indication [Not Recovered/Not Resolved]
  - Incorrect product storage [Not Recovered/Not Resolved]
  - Off label use [Not Recovered/Not Resolved]
